FAERS Safety Report 9789668 (Version 3)
Quarter: 2014Q1

REPORT INFORMATION
  Report Type: Spontaneous
  Country: US (occurrence: None)
  Receive Date: 20131227
  Receipt Date: 20140210
  Transmission Date: 20141002
  Serious: Yes (Death, Life-Threatening)
  Sender: FDA-Public Use
  Company Number: FK201305535

PATIENT
  Age: 57 Year
  Sex: Female
  Weight: 59 kg

DRUGS (4)
  1. PROPOFOL INJECTABLE EMULSION 1% (PROPOFOL, PROPOFOL) (PROPOFOL, PROPOFOL) [Suspect]
     Indication: INDUCTION OF ANAESTHESIA
     Dosage: UNKNOWN, UNKNOWN, INTRAVENOUS (NOT OTHERWISE SPECIFIED)
     Dates: start: 20131213, end: 20131213
  2. ANCEF (CEFAZOLIN SODIUM) [Concomitant]
  3. VERSED (MIDAZOLAM HYDROCHLORIDE) [Concomitant]
  4. FENTANYL (FENTANYL) [Concomitant]

REACTIONS (13)
  - Pulseless electrical activity [None]
  - Hypotension [None]
  - Bradycardia [None]
  - Tachycardia [None]
  - Blood pressure immeasurable [None]
  - Infusion site extravasation [None]
  - Carditis [None]
  - Cardiomyopathy [None]
  - Hepatic steatosis [None]
  - Sudden death [None]
  - Scar [None]
  - Dystrophic calcification [None]
  - Metaplasia [None]
